FAERS Safety Report 12569402 (Version 2)
Quarter: 2017Q2

REPORT INFORMATION
  Report Type: Spontaneous
  Country: US (occurrence: US)
  Receive Date: 20160719
  Receipt Date: 20170622
  Transmission Date: 20170830
  Serious: No
  Sender: FDA-Public Use
  Company Number: US-PFIZER INC-2016340608

PATIENT
  Sex: Male
  Weight: 73 kg

DRUGS (4)
  1. TRINTELLIX [Concomitant]
     Active Substance: VORTIOXETINE HYDROBROMIDE
     Indication: BIPOLAR DISORDER
     Dosage: UNK
  2. LAMOTRIGINE. [Concomitant]
     Active Substance: LAMOTRIGINE
     Indication: BIPOLAR DISORDER
     Dosage: 200 MG, 2X/DAY (200 MG IN THE MORNING AND 200 MG AT NIGHT)
     Route: 048
  3. CAVERJECT [Suspect]
     Active Substance: ALPROSTADIL
     Indication: ERECTILE DYSFUNCTION
     Dosage: 40 UG, UNK
  4. CAVERJECT [Suspect]
     Active Substance: ALPROSTADIL
     Dosage: 80 UG, UNK

REACTIONS (3)
  - Drug effect incomplete [Unknown]
  - Anaemia [Unknown]
  - Intentional product use issue [Unknown]
